FAERS Safety Report 6128461-0 (Version None)
Quarter: 2009Q1

REPORT INFORMATION
  Report Type: 
  Country: None (occurrence: None)
  Receive Date: 20090323
  Receipt Date: 20090312
  Transmission Date: 20090719
  Serious: Yes (Other)
  Sender: FDA-Public Use
  Company Number: CA-JNJFOC-20081202941

PATIENT
  Sex: Female
  Weight: 75 kg

DRUGS (8)
  1. REMICADE [Suspect]
     Route: 042
  2. REMICADE [Suspect]
     Indication: POLYARTHRITIS
     Route: 042
  3. EXTRA STRENGTH TYLENOL [Concomitant]
     Indication: PAIN
     Route: 048
  4. FOLIC ACID [Concomitant]
     Indication: PROPHYLAXIS
     Route: 048
  5. EFFEXOR XR [Concomitant]
     Indication: DEPRESSION
  6. OMEPRAZOLE [Concomitant]
     Indication: GASTROOESOPHAGEAL REFLUX DISEASE
     Route: 048
  7. METHOTREXATE [Concomitant]
     Route: 048
  8. PLAQUENIL [Concomitant]
     Indication: PROPHYLAXIS
     Route: 048

REACTIONS (3)
  - GROIN PAIN [None]
  - MOBILITY DECREASED [None]
  - PAIN IN EXTREMITY [None]
